FAERS Safety Report 9325564 (Version 1)
Quarter: 2013Q2

REPORT INFORMATION
  Report Type: Spontaneous
  Country: DE (occurrence: DE)
  Receive Date: 20130604
  Receipt Date: 20130604
  Transmission Date: 20140414
  Serious: Yes (Hospitalization)
  Sender: FDA-Public Use
  Company Number: DE-ROCHE-1232098

PATIENT
  Sex: Female

DRUGS (2)
  1. LUCENTIS [Suspect]
     Indication: MACULAR DEGENERATION
     Route: 050
     Dates: start: 201203, end: 201210
  2. EYLEA [Suspect]
     Indication: MACULAR DEGENERATION
     Route: 031
     Dates: start: 20130430

REACTIONS (1)
  - Deep vein thrombosis [Unknown]
